FAERS Safety Report 25852309 (Version 1)
Quarter: 2025Q3

REPORT INFORMATION
  Report Type: Spontaneous
  Country: SA (occurrence: SA)
  Receive Date: 20250926
  Receipt Date: 20250926
  Transmission Date: 20251021
  Serious: Yes (Death, Other)
  Sender: KYOWA
  Company Number: SA-KYOWAKIRIN-2025KK018549

PATIENT

DRUGS (1)
  1. POTELIGEO [Suspect]
     Active Substance: MOGAMULIZUMAB-KPKC
     Indication: Cutaneous T-cell lymphoma
     Route: 065

REACTIONS (2)
  - Bladder cancer [Fatal]
  - Drug eruption [Recovering/Resolving]

NARRATIVE: CASE EVENT DATE: 20240701
